FAERS Safety Report 15460268 (Version 1)
Quarter: 2018Q4

REPORT INFORMATION
  Report Type: Spontaneous
  Country: US (occurrence: US)
  Receive Date: 20181001
  Receipt Date: 20181001
  Transmission Date: 20190204
  Serious: Yes (Other)
  Sender: FDA-Public Use
  Company Number: None

PATIENT
  Sex: Female
  Weight: 62.1 kg

DRUGS (9)
  1. MAGNESIUM [Concomitant]
     Active Substance: MAGNESIUM
  2. CENTRUM [Concomitant]
     Active Substance: VITAMINS
  3. GLUCOSAMINE [Concomitant]
     Active Substance: GLUCOSAMINE
  4. ZESTRIL [Concomitant]
     Active Substance: LISINOPRIL
  5. D [Concomitant]
  6. FISH OIL [Concomitant]
     Active Substance: FISH OIL
  7. TIMOLOL MALEATE 0.25% [Suspect]
     Active Substance: TIMOLOL MALEATE
     Indication: GLAUCOMA
     Dosage: ?          QUANTITY:1 DROP(S);?
     Route: 047
  8. C,B, COMPLEX [Concomitant]
  9. ALPHA-LIPOIC [Concomitant]

REACTIONS (2)
  - Wrong technique in product usage process [None]
  - Arrhythmia [None]
